FAERS Safety Report 6944969-X (Version None)
Quarter: 2010Q3

REPORT INFORMATION
  Report Type: 
  Country: None (occurrence: None)
  Receive Date: 20100827
  Receipt Date: 20100818
  Transmission Date: 20110219
  Serious: Yes (Hospitalization)
  Sender: FDA-Public Use
  Company Number: US-NOVOPROD-313572

PATIENT
  Age: 63 Year
  Sex: Female
  Weight: 112.47 kg

DRUGS (5)
  1. NORDITROPIN FLEXPRO [Suspect]
     Indication: GROWTH HORMONE DEFICIENCY
     Dosage: 0.4 MG, QD
     Route: 058
     Dates: start: 20100713, end: 20100807
  2. NORDITROPIN FLEXPRO [Suspect]
     Dosage: 0.2 MG, QD
     Route: 058
     Dates: start: 20100808
  3. LEVOXYL [Concomitant]
     Indication: THYROIDECTOMY
     Dosage: UNK
  4. VITAMIN B-12 [Concomitant]
     Indication: VITAMIN B12 DEFICIENCY
     Dosage: INJECTION WEEKLY
  5. VITAMIN B                          /00056102/ [Concomitant]
     Indication: VITAMIN B COMPLEX DEFICIENCY
     Route: 048

REACTIONS (8)
  - ARTHRALGIA [None]
  - ASTHENIA [None]
  - BLOOD GLUCOSE INCREASED [None]
  - BODY TEMPERATURE INCREASED [None]
  - FATIGUE [None]
  - HEADACHE [None]
  - MYALGIA [None]
  - URINARY INCONTINENCE [None]
